FAERS Safety Report 13715334 (Version 1)
Quarter: 2017Q3

REPORT INFORMATION
  Report Type: Spontaneous
  Country: ES (occurrence: ES)
  Receive Date: 20170704
  Receipt Date: 20170704
  Transmission Date: 20171127
  Serious: Yes (Death, Life-Threatening, Other)
  Sender: FDA-Public Use
  Company Number: ES-TEVA-781200ISR

PATIENT
  Age: 74 Year
  Sex: Female
  Weight: 77 kg

DRUGS (7)
  1. PAROXETINA RATIOPHARM 20 MG COMPRIMIDOS RECUBIERTOS CON PELICULA EFG [Suspect]
     Active Substance: PAROXETINE HYDROCHLORIDE
     Indication: DEPRESSION
     Dosage: 20 MG
     Route: 048
     Dates: start: 20160425, end: 20170207
  2. HALOPERIDOL ESTEVE 10 MGCOMPRIMIDOS [Suspect]
     Active Substance: HALOPERIDOL
     Indication: CONDUCT DISORDER
     Dosage: 20 MG
     Route: 048
     Dates: start: 20170108, end: 20170205
  3. REMINYL 8 CAPSULAS DURAS [Concomitant]
     Indication: DEMENTIA ALZHEIMER^S TYPE
     Dosage: 8 MG
     Route: 048
     Dates: start: 20161114, end: 20170205
  4. DISTRANEURINE [Suspect]
     Active Substance: CLOMETHIAZOLE
     Indication: DEPRESSION
     Dosage: 10 MG
     Route: 048
     Dates: start: 20161109, end: 20170204
  5. OPTOVITE B12 1000 GAMMA S [Concomitant]
     Indication: DEPRESSION
     Dosage: 20 MG
     Route: 030
     Dates: start: 20160425, end: 20170207
  6. DIAZEPAM. [Concomitant]
     Active Substance: DIAZEPAM
     Indication: ANXIETY
     Dosage: 2 MG
     Route: 048
     Dates: start: 20170102
  7. NOCTAMID 1 MG COMPRIMIDOS [Concomitant]
     Indication: ANXIETY
     Route: 048
     Dates: start: 20170108, end: 20170207

REACTIONS (1)
  - Neuroleptic malignant syndrome [Fatal]

NARRATIVE: CASE EVENT DATE: 20170112
